FAERS Safety Report 4980260-9 (Version None)
Quarter: 2006Q2

REPORT INFORMATION
  Report Type: 
  Country: None (occurrence: None)
  Receive Date: 20060418
  Receipt Date: 20060330
  Transmission Date: 20061013
  Serious: Yes (Death, Hospitalization, Other)
  Sender: FDA-Public Use
  Company Number: CA_050808622

PATIENT
  Age: 78 Year
  Sex: Female

DRUGS (11)
  1. FORTEO [Suspect]
     Indication: OSTEOPOROSIS
     Dosage: 20 UG, DAILY (1/D), UNK
     Dates: start: 20050529
  2. PLAVIX [Concomitant]
  3. NOVASEN (ACETYLSALICYLIC ACID) [Concomitant]
  4. NU-RANIT (RANITIDINE HYDROCHLORIDE) [Concomitant]
  5. SIMVASTATIN [Concomitant]
  6. PMS-ATENOLOL (ATENOLOL) [Concomitant]
  7. NU-TRIAZIDE [Concomitant]
  8. CALCIUM (CALICUM) [Concomitant]
  9. VITAMI D (VITAMIN D) [Concomitant]
  10. TYLENOL W/ CODEINE NO. 4 [Concomitant]
  11. FORTEO PEN, 250MCG/ML(3ML) (FORTEO PEN 250MCG/ML (3ML)) PEN, DISPOSABL [Concomitant]

REACTIONS (16)
  - ABDOMINAL WALL CYST [None]
  - BACK PAIN [None]
  - BEDRIDDEN [None]
  - BLOOD CALCIUM INCREASED [None]
  - CARDIAC FAILURE CONGESTIVE [None]
  - DECREASED APPETITE [None]
  - DIARRHOEA [None]
  - DIFFICULTY IN WALKING [None]
  - GENERAL PHYSICAL HEALTH DETERIORATION [None]
  - IMPAIRED HEALING [None]
  - MASS EXCISION [None]
  - METASTASES TO BONE [None]
  - MYALGIA [None]
  - POSTOPERATIVE WOUND INFECTION [None]
  - SYNCOPE [None]
  - WEIGHT DECREASED [None]
